FAERS Safety Report 5420873-3 (Version None)
Quarter: 2007Q3

REPORT INFORMATION
  Report Type: 
  Country: None (occurrence: None)
  Receive Date: 20070817
  Receipt Date: 20070817
  Transmission Date: 20080115
  Serious: Yes (Hospitalization)
  Sender: FDA-Public Use
  Company Number: None

PATIENT
  Sex: Female
  Weight: 60.3 kg

DRUGS (2)
  1. FLUOROURACIL [Suspect]
     Dosage: 6400 MG
  2. MITOMYCIN-C BULK POWDER [Suspect]
     Dosage: 16 MG

REACTIONS (8)
  - ABDOMINAL PAIN [None]
  - DERMATITIS [None]
  - DIARRHOEA HAEMORRHAGIC [None]
  - FEBRILE NEUTROPENIA [None]
  - HYPOVOLAEMIA [None]
  - NAUSEA [None]
  - PROCTITIS [None]
  - VOMITING [None]
